FAERS Safety Report 12644162 (Version 1)
Quarter: 2016Q3

REPORT INFORMATION
  Report Type: Spontaneous
  Country: US (occurrence: US)
  Receive Date: 20160811
  Receipt Date: 20160811
  Transmission Date: 20161109
  Serious: Yes (Hospitalization, Other)
  Sender: FDA-Public Use
  Company Number: US-GLAXOSMITHKLINE-US2016114264

PATIENT
  Age: 51 Year

DRUGS (15)
  1. FLONASE [Concomitant]
     Active Substance: FLUTICASONE PROPIONATE
  2. OXYCODONE [Concomitant]
     Active Substance: OXYCODONE
  3. THEOPHYLLINE [Concomitant]
     Active Substance: THEOPHYLLINE ANHYDROUS
  4. IRON [Concomitant]
     Active Substance: IRON
  5. ALBUTEROL INHALER [Concomitant]
     Active Substance: ALBUTEROL
  6. ZOFRAN [Concomitant]
     Active Substance: ONDANSETRON HYDROCHLORIDE
  7. SANDOSTATIN [Concomitant]
     Active Substance: OCTREOTIDE ACETATE
     Dosage: ONCE A MONTH
  8. SPIRIVA [Concomitant]
     Active Substance: TIOTROPIUM BROMIDE MONOHYDRATE
  9. CALCIUM [Concomitant]
     Active Substance: CALCIUM
  10. ADVAIR DISKUS [Suspect]
     Active Substance: FLUTICASONE PROPIONATE\SALMETEROL XINAFOATE
     Indication: ASTHMA
     Dosage: 1 PUFF(S), BID
     Route: 055
     Dates: start: 2000
  11. MORPHINE SULFATE. [Concomitant]
     Active Substance: MORPHINE SULFATE
  12. SINGULAIR [Concomitant]
     Active Substance: MONTELUKAST SODIUM
  13. DEXILANT [Concomitant]
     Active Substance: DEXLANSOPRAZOLE
  14. DICYCLOMINE [Concomitant]
     Active Substance: DICYCLOMINE HYDROCHLORIDE
  15. XOPENEX [Concomitant]
     Active Substance: LEVALBUTEROL HYDROCHLORIDE

REACTIONS (5)
  - Hepatic cancer recurrent [Not Recovered/Not Resolved]
  - Fall [Unknown]
  - Pleural effusion [Recovered/Resolved]
  - Ankle fracture [Recovering/Resolving]
  - Ankle operation [Recovering/Resolving]

NARRATIVE: CASE EVENT DATE: 201310
